FAERS Safety Report 6770377 (Version 2)
Quarter: 2013Q1

REPORT INFORMATION
  Report Type: Spontaneous
  Country: NO (occurrence: None)
  Receive Date: 20080911
  Receipt Date: 20130114
  Transmission Date: 20140127
  Serious: Yes (Other)
  Sender: FDA-Public Use
  Company Number: 2008AP002255

PATIENT
  Age: 15 Year
  Sex: Female

DRUGS (2)
  1. CARBAMAZEPINE [Suspect]
     Indication: EPILEPSY
     Dosage: 375 MG;TAB;PO;BID
     Route: 048
     Dates: start: 200806, end: 20080811
  2. NORETHISTERONE (NORETHISTERONE) [Concomitant]

REACTIONS (4)
  - Rash generalised [None]
  - C-reactive protein increased [None]
  - Red blood cell sedimentation rate increased [None]
  - White blood cell count increased [None]
